FAERS Safety Report 17173092 (Version 5)
Quarter: 2020Q3

REPORT INFORMATION
  Report Type: Spontaneous
  Country: CN (occurrence: CN)
  Receive Date: 20191219
  Receipt Date: 20200117
  Transmission Date: 20201104
  Serious: Yes (Hospitalization)
  Sender: FDA-Public Use
  Company Number: CN-CELGENEUS-CHN-20191206248

PATIENT
  Age: 56 Year
  Sex: Male
  Weight: 69 kg

DRUGS (7)
  1. SERPLULIMAB. [Suspect]
     Active Substance: SERPLULIMAB
     Route: 041
     Dates: start: 20191224
  2. CARBOPLATIN. [Suspect]
     Active Substance: CARBOPLATIN
     Indication: LUNG SQUAMOUS CELL CARCINOMA STAGE III
     Route: 041
     Dates: start: 20191119, end: 20191210
  3. ABRAXANE [Suspect]
     Active Substance: PACLITAXEL
     Dosage: 181.8 MILLIGRAM
     Route: 041
     Dates: start: 20191224
  4. CARBOPLATIN. [Suspect]
     Active Substance: CARBOPLATIN
     Route: 041
     Dates: start: 20191224
  5. ABRAXANE [Suspect]
     Active Substance: PACLITAXEL
     Indication: LUNG SQUAMOUS CELL CARCINOMA STAGE III
     Dosage: 181.8 MILLIGRAM
     Route: 041
     Dates: start: 20191119, end: 20191210
  6. TROPISETRON HYDROCHLORIDE [Concomitant]
     Active Substance: TROPISETRON HYDROCHLORIDE
     Indication: ANTIEMETIC SUPPORTIVE CARE
     Dosage: 5 MILLIGRAM
     Route: 041
     Dates: start: 20191203, end: 20191203
  7. SERPLULIMAB. [Suspect]
     Active Substance: SERPLULIMAB
     Indication: LUNG SQUAMOUS CELL CARCINOMA STAGE III
     Route: 041
     Dates: start: 20191119, end: 20191210

REACTIONS (1)
  - Supraventricular extrasystoles [Recovered/Resolved]

NARRATIVE: CASE EVENT DATE: 20191210
